FAERS Safety Report 5527386-9 (Version None)
Quarter: 2007Q4

REPORT INFORMATION
  Report Type: 
  Country: None (occurrence: None)
  Receive Date: 20071123
  Receipt Date: 20071109
  Transmission Date: 20080405
  Serious: Yes (Death)
  Sender: FDA-Public Use
  Company Number: 071113-0001276

PATIENT

DRUGS (6)
  1. COSMEGEN [Suspect]
     Indication: EWING'S SARCOMA METASTATIC
     Dosage: 1.25 MG/M**2; ; IV
     Route: 042
  2. VINCRISTINE [Suspect]
     Indication: EWING'S SARCOMA METASTATIC
     Dosage: 1.5 MG/M**2; ; IV
     Route: 042
  3. IFOSFAMIDE [Suspect]
     Indication: EWING'S SARCOMA METASTATIC
     Dosage: 2800 MG/M**2; ; IV
     Route: 042
  4. ADRIAMYCIN PFS [Suspect]
     Indication: EWING'S SARCOMA METASTATIC
     Dosage: 30 MG/M**2; ; IV
     Route: 042
  5. ETOPOSIDE [Suspect]
     Indication: EWING'S SARCOMA METASTATIC
     Dosage: 100 MG/M**2; ; IV
     Route: 042
  6. CYCLOPHOSPHAMIDE [Suspect]
     Indication: EWING'S SARCOMA METASTATIC
     Dosage: 2200 MG/M**2; ; IV
     Route: 042

REACTIONS (1)
  - BACTERIAL SEPSIS [None]
